FAERS Safety Report 9764864 (Version 1)
Quarter: 2013Q4

REPORT INFORMATION
  Report Type: Spontaneous
  Country: US (occurrence: US)
  Receive Date: 20131217
  Receipt Date: 20131217
  Transmission Date: 20140711
  Serious: No
  Sender: FDA-Public Use
  Company Number: US-BIOGENIDEC-2013BI113075

PATIENT
  Age: 50 Year
  Sex: Female

DRUGS (3)
  1. TECFIDERA [Suspect]
     Indication: MULTIPLE SCLEROSIS
     Dates: start: 20131108
  2. PLAVIS [Concomitant]
  3. BACLOFEN [Concomitant]

REACTIONS (3)
  - Palpitations [Unknown]
  - Drug intolerance [Unknown]
  - Flushing [Recovered/Resolved]
